FAERS Safety Report 24531478 (Version 1)
Quarter: 2024Q4

REPORT INFORMATION
  Report Type: Spontaneous
  Country: IT (occurrence: IT)
  Receive Date: 20241022
  Receipt Date: 20241022
  Transmission Date: 20250115
  Serious: Yes (Life-Threatening)
  Sender: ACCORD
  Company Number: None

PATIENT
  Age: 57 Year
  Sex: Male
  Weight: 79 kg

DRUGS (2)
  1. OXALIPLATIN [Suspect]
     Active Substance: OXALIPLATIN
     Indication: Colon cancer
     Dosage: OXALIPLATIN 85MG/M2 123.00MG GLUCOSE 5 PERCENT 250ML 120 MINUTE INFUSION
     Dates: start: 20240319, end: 20240924
  2. BEVACIZUMAB [Concomitant]
     Active Substance: BEVACIZUMAB
     Dosage: VEGZELMA

REACTIONS (1)
  - Oropharyngeal oedema [Recovering/Resolving]

NARRATIVE: CASE EVENT DATE: 20240924
